FAERS Safety Report 24319724 (Version 1)
Quarter: 2024Q3

REPORT INFORMATION
  Report Type: Report from Study
  Country: US (occurrence: US)
  Receive Date: 20240914
  Receipt Date: 20240914
  Transmission Date: 20241016
  Serious: Yes (Hospitalization)
  Sender: JAZZ
  Company Number: US-JAZZ PHARMACEUTICALS-2024-US-014963

PATIENT
  Sex: Male

DRUGS (1)
  1. EPIDIOLEX [Suspect]
     Active Substance: CANNABIDIOL
     Indication: Epilepsy
     Dosage: 3 ML IN MORNING (FIRST DOSE) AND 3.5 ML AT NIGHT (SECOND DOSE)
     Route: 048
     Dates: start: 20200601

REACTIONS (1)
  - Hospitalisation [Unknown]
